FAERS Safety Report 5708388-6 (Version None)
Quarter: 2008Q2

REPORT INFORMATION
  Report Type: 
  Country: None (occurrence: None)
  Receive Date: 20080417
  Receipt Date: 20080409
  Transmission Date: 20081010
  Serious: Yes (Hospitalization)
  Sender: FDA-Public Use
  Company Number: HU-ELI_LILLY_AND_COMPANY-HU200802006954

PATIENT
  Age: 62 Year
  Sex: Female

DRUGS (13)
  1. LISPRO REGLISPRO [Suspect]
     Indication: DIABETES MELLITUS
     Dosage: 17 IU, EACH MORNING
     Route: 058
     Dates: start: 20050501
  2. LISPRO REGLISPRO [Suspect]
     Dosage: 14 IU, NOON
     Route: 058
     Dates: start: 20050501
  3. LISPRO REGLISPRO [Suspect]
     Dosage: 16 IU, EACH EVENING
     Route: 058
     Dates: start: 20050501
  4. LISPRO REGLISPRO [Suspect]
     Dosage: 47 IU, 3/D
  5. HUMULIN R [Suspect]
     Dosage: 17 IU, EACH MORNING
     Route: 058
  6. HUMULIN R [Suspect]
     Dosage: 14 IU, EACH NOON
     Route: 058
  7. HUMULIN R [Suspect]
     Dosage: 16 IU, EACH EVENING
     Route: 058
  8. LEVEMIR [Concomitant]
     Indication: DIABETES MELLITUS
     Dosage: 21 IU, EACH MORNING
     Route: 058
  9. LEVEMIR [Concomitant]
     Dosage: 21 IU, EACH EVENING
     Route: 058
  10. LEVEMIR [Concomitant]
     Dosage: 45 IU, 2/D
  11. PREDUCTAL [Concomitant]
     Dosage: UNK, 2/D
     Route: 048
  12. METFORMIN HCL [Concomitant]
     Indication: DIABETES MELLITUS
     Dosage: 425 MG, 2/D
     Route: 065
  13. CRESTOR [Concomitant]
     Dosage: 20 MG, DAILY (1/D)
     Route: 048

REACTIONS (1)
  - LICHEN PLANUS [None]
